FAERS Safety Report 11215639 (Version 2)
Quarter: 2015Q3

REPORT INFORMATION
  Report Type: Spontaneous
  Country: JP (occurrence: JP)
  Receive Date: 20150624
  Receipt Date: 20150824
  Transmission Date: 20151125
  Serious: Yes (Hospitalization)
  Sender: FDA-Public Use
  Company Number: JP-PFIZER INC-2015205471

PATIENT
  Age: 78 Year
  Sex: Female

DRUGS (4)
  1. SPIROPENT [Suspect]
     Active Substance: CLENBUTEROL HYDROCHLORIDE
     Dosage: 20 MG, 2X/DAY
     Dates: start: 20140723, end: 20150531
  2. LYRICA [Suspect]
     Active Substance: PREGABALIN
     Dosage: 100 MG DAILY (MORNING: 75 MG, BEFORE BEDTIME: 25 MG)
     Route: 048
     Dates: start: 20150427, end: 20150502
  3. CRESTOR [Concomitant]
     Active Substance: ROSUVASTATIN CALCIUM
     Dosage: 2.5 MG, 1X/DAY
     Dates: start: 20140623
  4. PLAVIX [Concomitant]
     Active Substance: CLOPIDOGREL BISULFATE
     Dosage: 75 MG, 1X/DAY
     Dates: start: 20140623

REACTIONS (1)
  - Ileus [Recovered/Resolved]

NARRATIVE: CASE EVENT DATE: 20150522
